FAERS Safety Report 14852814 (Version 2)
Quarter: 2018Q2

REPORT INFORMATION
  Report Type: Spontaneous
  Country: HU (occurrence: HU)
  Receive Date: 20180507
  Receipt Date: 20180601
  Transmission Date: 20180711
  Serious: Yes (Hospitalization, Other)
  Sender: FDA-Public Use
  Company Number: HU-BRISTOL-MYERS SQUIBB COMPANY-BMS-2018-038041

PATIENT
  Sex: Male

DRUGS (3)
  1. IPILIMUMAB [Suspect]
     Active Substance: IPILIMUMAB
     Indication: SQUAMOUS CELL CARCINOMA
     Dosage: UNK, QCYCLE
     Route: 065
     Dates: start: 20131001, end: 20140104
  2. PACLITAXEL. [Suspect]
     Active Substance: PACLITAXEL
     Indication: SQUAMOUS CELL CARCINOMA
     Dosage: UNK UNK, QCYCLE
     Route: 065
     Dates: start: 20131001, end: 20140104
  3. CISPLATIN. [Suspect]
     Active Substance: CISPLATIN
     Indication: SQUAMOUS CELL CARCINOMA
     Dosage: UNK, QCYCLE
     Route: 065
     Dates: start: 20131001, end: 20140104

REACTIONS (6)
  - Polyneuropathy [Unknown]
  - Product use in unapproved indication [Unknown]
  - Neoplasm progression [Unknown]
  - Type 1 diabetes mellitus [Unknown]
  - Cerebral haemorrhage [Unknown]
  - Angiopathy [Unknown]

NARRATIVE: CASE EVENT DATE: 201608
